FAERS Safety Report 24041116 (Version 1)
Quarter: 2024Q3

REPORT INFORMATION
  Report Type: Spontaneous
  Country: US (occurrence: None)
  Receive Date: 20240702
  Receipt Date: 20240702
  Transmission Date: 20241016
  Serious: Yes (Hospitalization)
  Sender: Public
  Company Number: None

PATIENT
  Age: 67 Year
  Sex: Male
  Weight: 81.8 kg

DRUGS (5)
  1. FLUOROURACIL [Suspect]
     Active Substance: FLUOROURACIL
     Dates: end: 20240617
  2. IRINOTECAN [Suspect]
     Active Substance: IRINOTECAN
     Dates: end: 20240617
  3. LEUCOVORIN CALCIUM [Suspect]
     Active Substance: LEUCOVORIN CALCIUM
     Dates: end: 20240617
  4. OXALIPLATIN [Suspect]
     Active Substance: OXALIPLATIN
     Dates: end: 20240617
  5. OXALIPLATIN [Suspect]
     Active Substance: OXALIPLATIN

REACTIONS (11)
  - Abdominal pain upper [None]
  - Pain [None]
  - Nausea [None]
  - Vomiting [None]
  - Diarrhoea [None]
  - Urinary retention [None]
  - Dysuria [None]
  - Tachycardia [None]
  - Pancreatitis acute [None]
  - Malignant neoplasm progression [None]
  - Gastrointestinal disorder [None]

NARRATIVE: CASE EVENT DATE: 20240630
